FAERS Safety Report 16438778 (Version 1)
Quarter: 2019Q2

REPORT INFORMATION
  Report Type: Spontaneous
  Country: JP (occurrence: JP)
  Receive Date: 20190617
  Receipt Date: 20190617
  Transmission Date: 20190711
  Serious: Yes (Hospitalization, Other)
  Sender: FDA-Public Use
  Company Number: JP-ACCORD-132845

PATIENT
  Age: 67 Year
  Sex: Male

DRUGS (2)
  1. ENTECAVIR. [Suspect]
     Active Substance: ENTECAVIR
     Indication: HEPATITIS B
     Dosage: 0.5 MG EVERY OTHER DAY, TWICE A WEEK
  2. TACROLIMUS. [Suspect]
     Active Substance: TACROLIMUS
     Indication: IMMUNOSUPPRESSION
     Dosage: FOR 5 YEARS

REACTIONS (2)
  - Fanconi syndrome [Recovering/Resolving]
  - Renal impairment [Recovered/Resolved]
